FAERS Safety Report 9150737 (Version 1)
Quarter: 2013Q1

REPORT INFORMATION
  Report Type: Spontaneous
  Country: US (occurrence: US)
  Receive Date: 20130308
  Receipt Date: 20130308
  Transmission Date: 20140127
  Serious: Yes (Other)
  Sender: FDA-Public Use
  Company Number: US-ASTELLAS-2013US000942

PATIENT
  Age: 69 Year
  Sex: Male

DRUGS (12)
  1. XTANDI [Suspect]
     Indication: PROSTATE CANCER
     Dosage: 160 MG, UID/QD
     Route: 048
     Dates: start: 20121229, end: 20130118
  2. XTANDI [Suspect]
     Dosage: 160 MG, UID/QD
     Route: 048
     Dates: start: 20130125, end: 20130128
  3. DIOVAN [Concomitant]
     Indication: PRODUCT USED FOR UNKNOWN INDICATION
     Dosage: 320 MG, UID/QD
     Route: 048
  4. AMLODIPINE BESYLATE [Concomitant]
     Indication: PRODUCT USED FOR UNKNOWN INDICATION
     Dosage: 5 MG, UID/QD
     Route: 048
     Dates: start: 20111214
  5. OXYCONTIN [Concomitant]
     Indication: PRODUCT USED FOR UNKNOWN INDICATION
     Dosage: 40 MG, BID
     Route: 065
     Dates: start: 20111214
  6. ALPRAZOLAM [Concomitant]
     Indication: PRODUCT USED FOR UNKNOWN INDICATION
     Dosage: 0.25 MG, PRN
     Route: 065
     Dates: start: 20120606
  7. ASPIRIN [Concomitant]
     Indication: PRODUCT USED FOR UNKNOWN INDICATION
     Dosage: 81 MG, UID/QD
     Route: 065
     Dates: start: 20121211
  8. AKTEN [Concomitant]
     Indication: PRODUCT USED FOR UNKNOWN INDICATION
     Dosage: UNK
     Route: 065
     Dates: start: 20111214
  9. LUPRON DEPOT [Concomitant]
     Indication: PRODUCT USED FOR UNKNOWN INDICATION
     Dosage: 22.5 MG, Q3MONTHS
     Route: 065
     Dates: start: 20111017
  10. XGEVA [Concomitant]
     Indication: PRODUCT USED FOR UNKNOWN INDICATION
     Dosage: UNK
     Route: 058
     Dates: start: 20120406
  11. PERCOCET                           /00867901/ [Concomitant]
     Indication: PAIN
     Dosage: 1-2 TABLETS, PRN
     Route: 065
  12. LOTRIMIN ULTRA [Concomitant]
     Indication: FUNGAL SKIN INFECTION
     Dosage: 1 %, BID-TID
     Route: 061
     Dates: start: 20121109

REACTIONS (20)
  - Muscle twitching [Unknown]
  - Nausea [Unknown]
  - Depression [Unknown]
  - Paraesthesia [Not Recovered/Not Resolved]
  - Disturbance in attention [Not Recovered/Not Resolved]
  - Thinking abnormal [Not Recovered/Not Resolved]
  - Fatigue [Not Recovered/Not Resolved]
  - Asthenia [Not Recovered/Not Resolved]
  - Insomnia [Not Recovered/Not Resolved]
  - Myalgia [Unknown]
  - Back pain [Recovering/Resolving]
  - Arthralgia [Unknown]
  - Dry skin [Unknown]
  - Anxiety [Unknown]
  - Hot flush [Unknown]
  - Dyspnoea exertional [Unknown]
  - Haematuria [Unknown]
  - Hypoaesthesia [Not Recovered/Not Resolved]
  - Retching [Recovered/Resolved]
  - Decreased appetite [Unknown]
